FAERS Safety Report 18315845 (Version 1)
Quarter: 2020Q3

REPORT INFORMATION
  Report Type: Other
  Country: CA (occurrence: CA)
  Receive Date: 20200926
  Receipt Date: 20200926
  Transmission Date: 20201103
  Serious: Yes (Other)
  Sender: FDA-Public Use
  Company Number: CA-CELLTRION INC.-2020CA026613

PATIENT

DRUGS (17)
  1. OMEPRAZOLE. [Concomitant]
     Active Substance: OMEPRAZOLE
  2. RITUXIMAB (UNKNOWN) [Suspect]
     Active Substance: RITUXIMAB
     Indication: RHEUMATOID ARTHRITIS
     Dosage: 1000 MG
     Route: 042
  3. CELEXA [Concomitant]
     Active Substance: CITALOPRAM HYDROBROMIDE
  4. PRAVASTATIN. [Concomitant]
     Active Substance: PRAVASTATIN
  5. ACETAMINOPHEN. [Concomitant]
     Active Substance: ACETAMINOPHEN
     Indication: PREMEDICATION
     Dosage: 650 MG
     Route: 048
  6. DIPHENHYDRAMINE. [Concomitant]
     Active Substance: DIPHENHYDRAMINE
     Indication: PREMEDICATION
     Dosage: 50 MG
     Route: 048
  7. METHYLPREDNISOLONE. [Concomitant]
     Active Substance: METHYLPREDNISOLONE
     Indication: PREMEDICATION
     Dosage: 100 MG
     Route: 048
  8. CELEBREX [Concomitant]
     Active Substance: CELECOXIB
  9. METHOTREXATE. [Concomitant]
     Active Substance: METHOTREXATE
  10. OSCAL [Concomitant]
     Active Substance: CALCIUM CARBONATE
  11. PREDNISONE. [Concomitant]
     Active Substance: PREDNISONE
  12. ASA [Concomitant]
     Active Substance: ASPIRIN
  13. PLAQUENIL [Concomitant]
     Active Substance: HYDROXYCHLOROQUINE SULFATE
  14. FOLIC ACID. [Concomitant]
     Active Substance: FOLIC ACID
  15. SYNTHROID [Concomitant]
     Active Substance: LEVOTHYROXINE SODIUM
  16. TRAMACET [Concomitant]
     Active Substance: ACETAMINOPHEN\TRAMADOL
  17. VALACYCLOVIR [Concomitant]
     Active Substance: VALACYCLOVIR HYDROCHLORIDE
     Route: 065

REACTIONS (5)
  - Abdominal pain [Not Recovered/Not Resolved]
  - Arthralgia [Not Recovered/Not Resolved]
  - Haematoma [Not Recovered/Not Resolved]
  - Tendon rupture [Not Recovered/Not Resolved]
  - Muscle rupture [Not Recovered/Not Resolved]
